FAERS Safety Report 9931620 (Version 1)
Quarter: 2014Q1

REPORT INFORMATION
  Report Type: Spontaneous
  Country: GB (occurrence: None)
  Receive Date: 20140224
  Receipt Date: 20140224
  Transmission Date: 20141002
  Serious: Yes (Other)
  Sender: FDA-Public Use
  Company Number: AUR-APL-2014-01831

PATIENT
  Age: 34 Year
  Sex: Male

DRUGS (9)
  1. RIBAVIRIN (RIBAVIRIN) [Suspect]
     Indication: HEPATITIS C
     Dosage: 1 D
     Route: 048
     Dates: start: 201404
  2. TELAPREVIR (TELAPREVIR) [Suspect]
     Indication: HEPATITIS C
     Dosage: (1125 MG , 2 IN 1 D)
     Route: 048
     Dates: start: 201304
  3. VIRAFERON [Suspect]
     Indication: HEPATITIS C
     Dosage: INITIATED AT 150MCG  0.3ML.
     Dates: start: 201304
  4. ADCAL-D3 (COLECALCIFEROL) [Concomitant]
  5. FOLIC ACID(FOLIC ACID) [Concomitant]
  6. FUROSEMIDE (FUROSEMIDE) [Concomitant]
  7. METHADONE (METHADONE) [Concomitant]
  8. MIRTAZAPINE (MIRTAZAPINE) [Concomitant]
  9. TERBUTALINE SULPHATE (TERBUTALINE SULFATE) [Concomitant]

REACTIONS (8)
  - Leukopenia [None]
  - Thrombocytopenia [None]
  - Neutropenia [None]
  - Anaemia [None]
  - Influenza like illness [None]
  - Mood altered [None]
  - Rash [None]
  - Lethargy [None]
